FAERS Safety Report 22599943 (Version 1)
Quarter: 2023Q2

REPORT INFORMATION
  Report Type: Spontaneous
  Country: FR (occurrence: FR)
  Receive Date: 20230614
  Receipt Date: 20230614
  Transmission Date: 20230721
  Serious: Yes (Other)
  Sender: FDA-Public Use
  Company Number: FR-009507513-2305FRA005959

PATIENT
  Age: 52 Year
  Sex: Female

DRUGS (2)
  1. CARBOPLATIN [Suspect]
     Active Substance: CARBOPLATIN
     Indication: Breast cancer female
     Dosage: UNK
  2. KEYTRUDA [Suspect]
     Active Substance: PEMBROLIZUMAB
     Indication: Breast cancer female
     Dosage: UNK

REACTIONS (4)
  - Troponin increased [Unknown]
  - Electrocardiogram abnormal [Unknown]
  - Cardiac disorder [Recovering/Resolving]
  - Malaise [Unknown]
